FAERS Safety Report 4285927-6 (Version None)
Quarter: 2004Q1

REPORT INFORMATION
  Report Type: 
  Country: None (occurrence: None)
  Receive Date: 20040205
  Receipt Date: 20040123
  Transmission Date: 20041129
  Serious: Yes (Life-Threatening, Hospitalization)
  Sender: FDA-Public Use
  Company Number: ES-GLAXOSMITHKLINE-B0321041A

PATIENT
  Age: 63 Year
  Sex: Male

DRUGS (5)
  1. FLUTICASONE PROPIONATE [Suspect]
     Indication: PULMONARY FIBROSIS
     Route: 055
     Dates: start: 20030514, end: 20030702
  2. OMEPRAZOLE [Concomitant]
     Indication: DRUG USE FOR UNKNOWN INDICATION
     Dosage: 50MG PER DAY
     Route: 048
     Dates: start: 20030514, end: 20030702
  3. BROMAZEPAM [Concomitant]
     Indication: DRUG USE FOR UNKNOWN INDICATION
     Dosage: 1.5MG TWICE PER DAY
     Route: 048
     Dates: start: 20030514, end: 20030702
  4. PULMOCARE [Concomitant]
     Indication: DRUG USE FOR UNKNOWN INDICATION
     Dosage: 1000ML TWICE PER DAY
     Route: 048
     Dates: start: 20030514, end: 20030702
  5. DEFLAZACORT [Concomitant]
     Indication: DRUG USE FOR UNKNOWN INDICATION
     Dosage: 60MG TWICE PER DAY
     Route: 048
     Dates: start: 20030514

REACTIONS (2)
  - ERYTHEMA MULTIFORME [None]
  - SKIN HYPERPIGMENTATION [None]
